FAERS Safety Report 17563235 (Version 2)
Quarter: 2020Q2

REPORT INFORMATION
  Report Type: Spontaneous
  Country: US (occurrence: US)
  Receive Date: 20200320
  Receipt Date: 20200401
  Transmission Date: 20200713
  Serious: Yes (Other)
  Sender: FDA-Public Use
  Company Number: US-AUROBINDO-AUR-APL-2020-013627

PATIENT
  Age: 54 Year
  Sex: Female

DRUGS (4)
  1. ETOPOSIDE. [Suspect]
     Active Substance: ETOPOSIDE
     Indication: NEUROENDOCRINE CARCINOMA METASTATIC
     Dosage: UNK, 6 CYCLE (STANDARD-DOSE, EVERY 3 WEEKS)
     Route: 065
     Dates: start: 2018
  2. IPILIMUMAB [Suspect]
     Active Substance: IPILIMUMAB
     Indication: NEUROENDOCRINE CARCINOMA METASTATIC
     Dosage: 1 MILLIGRAM/KILOGRAM, 6 CYCLE (EVERY 3 WEEKS)
     Route: 065
     Dates: start: 2018
  3. NIVOLUMAB [Suspect]
     Active Substance: NIVOLUMAB
     Indication: NEUROENDOCRINE CARCINOMA METASTATIC
     Dosage: 3 MILLIGRAM/KILOGRAM, 6 CYCLE (EVERY 3 WEEKS)
     Route: 065
     Dates: start: 2018
  4. CARBOPLATIN. [Suspect]
     Active Substance: CARBOPLATIN
     Indication: NEUROENDOCRINE CARCINOMA METASTATIC
     Dosage: UNK 6 CYCLE (STANDARD-DOSE, EVERY 3 WEEKS)
     Route: 065
     Dates: start: 2018

REACTIONS (1)
  - Neutropenic sepsis [Recovered/Resolved]
